FAERS Safety Report 14347297 (Version 1)
Quarter: 2018Q1

REPORT INFORMATION
  Report Type: Spontaneous
  Country: GB (occurrence: DE)
  Receive Date: 20180103
  Receipt Date: 20180103
  Transmission Date: 20180509
  Serious: Yes (Other)
  Sender: FDA-Public Use
  Company Number: DE-FRESENIUS KABI-FK201711627

PATIENT
  Sex: Male
  Weight: 73.3 kg

DRUGS (3)
  1. ONCOFOLIC [Concomitant]
     Active Substance: FOLATE SODIUM
     Indication: RECTAL ADENOCARCINOMA
     Route: 042
     Dates: start: 20150518, end: 20151110
  2. 5-FU MEDAC [Concomitant]
     Active Substance: FLUOROURACIL
     Indication: RECTAL ADENOCARCINOMA
     Route: 042
     Dates: start: 20150518
  3. OXALIPLATIN (MANUFACTURER UNKNOWN) [Suspect]
     Active Substance: OXALIPLATIN
     Indication: RECTAL ADENOCARCINOMA
     Route: 042
     Dates: start: 20150518

REACTIONS (1)
  - Bronchitis [Recovered/Resolved]

NARRATIVE: CASE EVENT DATE: 20150713
